FAERS Safety Report 7665910-0 (Version None)
Quarter: 2011Q3

REPORT INFORMATION
  Report Type: 
  Country: None (occurrence: None)
  Receive Date: 20110806
  Receipt Date: 20110621
  Transmission Date: 20111222
  Serious: No
  Sender: FDA-Public Use
  Company Number: US-ABBOTT-11P-163-0734020-00

PATIENT
  Sex: Female
  Weight: 63.56 kg

DRUGS (3)
  1. LOVAZA [Concomitant]
     Indication: PRODUCT USED FOR UNKNOWN INDICATION
  2. NIASPAN [Suspect]
     Indication: BLOOD TRIGLYCERIDES INCREASED
     Dosage: AT BEDTIME
     Dates: start: 20110401
  3. ASPIRIN [Concomitant]
     Indication: PRODUCT USED FOR UNKNOWN INDICATION
     Dosage: AT BEDTIME

REACTIONS (5)
  - GENERALISED ERYTHEMA [None]
  - PAIN OF SKIN [None]
  - WEIGHT INCREASED [None]
  - EXTRASYSTOLES [None]
  - FLUSHING [None]
